FAERS Safety Report 15871212 (Version 2)
Quarter: 2019Q1

REPORT INFORMATION
  Report Type: Report from Study
  Country: US (occurrence: US)
  Receive Date: 20190126
  Receipt Date: 20190207
  Transmission Date: 20190417
  Serious: Yes (Hospitalization)
  Sender: FDA-Public Use
  Company Number: PHHY2019US013971

PATIENT
  Age: 35 Year
  Sex: Male
  Weight: 105.3 kg

DRUGS (1)
  1. GILENYA [Suspect]
     Active Substance: FINGOLIMOD HYDROCHLORIDE
     Indication: MULTIPLE SCLEROSIS
     Dosage: UNK MG, UNK
     Route: 048
     Dates: start: 20140605, end: 20180705

REACTIONS (1)
  - Brown-Sequard syndrome [Recovered/Resolved with Sequelae]

NARRATIVE: CASE EVENT DATE: 20181203
